FAERS Safety Report 20608635 (Version 3)
Quarter: 2022Q4

REPORT INFORMATION
  Report Type: Other
  Country: DE (occurrence: None)
  Receive Date: 20220317
  Receipt Date: 20221027
  Transmission Date: 20230113
  Serious: Yes (Hospitalization, Other)
  Sender: FDA-Public Use
  Company Number: DE-ROCHE-2179848

PATIENT
  Age: 36 Year
  Sex: Female

DRUGS (8)
  1. OCREVUS [Suspect]
     Active Substance: OCRELIZUMAB
     Indication: Relapsing-remitting multiple sclerosis
     Dosage: DATE OF TREATMENT: 11/JUL/2019, 21/JUL/2020, 21/JAN/2021 (175 DAYS)
     Route: 042
     Dates: start: 20180611
  2. OCREVUS [Suspect]
     Active Substance: OCRELIZUMAB
     Route: 042
     Dates: start: 20210121
  3. OCREVUS [Suspect]
     Active Substance: OCRELIZUMAB
     Route: 042
     Dates: start: 20210831
  4. DALFAMPRIDINE [Concomitant]
     Active Substance: DALFAMPRIDINE
  5. CARBAMAZEPINE [Concomitant]
     Active Substance: CARBAMAZEPINE
  6. BACLOFEN [Concomitant]
     Active Substance: BACLOFEN
  7. LYRICA [Concomitant]
     Active Substance: PREGABALIN
  8. OXCARBAZEPINE [Concomitant]
     Active Substance: OXCARBAZEPINE

REACTIONS (10)
  - Pulmonary embolism [Recovered/Resolved]
  - COVID-19 [Recovered/Resolved]
  - Thrombosis [Recovered/Resolved]
  - Incorrect dose administered [Unknown]
  - Fatigue [Recovered/Resolved]
  - Nail growth abnormal [Recovered/Resolved]
  - Hair texture abnormal [Recovered/Resolved]
  - Asthenia [Recovered/Resolved]
  - Bursitis [Recovered/Resolved]
  - Iron deficiency [Not Recovered/Not Resolved]

NARRATIVE: CASE EVENT DATE: 20180611
